FAERS Safety Report 11640149 (Version 2)
Quarter: 2015Q4

REPORT INFORMATION
  Report Type: Report from Study
  Country: US (occurrence: US)
  Receive Date: 20151019
  Receipt Date: 20151119
  Transmission Date: 20160304
  Serious: Yes (Hospitalization, Other)
  Sender: FDA-Public Use
  Company Number: US-AMGEN-USASL2015107392

PATIENT
  Age: 55 Year
  Sex: Male

DRUGS (1)
  1. ENBREL [Suspect]
     Active Substance: ETANERCEPT
     Indication: PSORIATIC ARTHROPATHY
     Dosage: 50 MG, QWK
     Route: 065

REACTIONS (6)
  - Pneumonia [Unknown]
  - Psoriatic arthropathy [Unknown]
  - Malaise [Unknown]
  - Drug dose omission [Unknown]
  - Intentional product misuse [Unknown]
  - Condition aggravated [Unknown]
